FAERS Safety Report 10934061 (Version 1)
Quarter: 2015Q1

REPORT INFORMATION
  Report Type: Spontaneous
  Country: US (occurrence: US)
  Receive Date: 20150320
  Receipt Date: 20150320
  Transmission Date: 20150721
  Serious: No
  Sender: FDA-Public Use
  Company Number: US-PFIZER INC-2015097026

PATIENT
  Age: 51 Year
  Sex: Female

DRUGS (2)
  1. CHILDRENS ADVIL [Suspect]
     Active Substance: IBUPROFEN
     Indication: FIBROMYALGIA
     Dosage: UNK
  2. CHILDRENS ADVIL [Suspect]
     Active Substance: IBUPROFEN
     Indication: RHEUMATOID ARTHRITIS

REACTIONS (2)
  - Intentional product misuse [Unknown]
  - Drug ineffective for unapproved indication [Unknown]
